FAERS Safety Report 18424597 (Version 2)
Quarter: 2021Q1

REPORT INFORMATION
  Report Type: Report from Study
  Country: None (occurrence: US)
  Receive Date: 20201026
  Receipt Date: 20210322
  Transmission Date: 20210419
  Serious: Yes (Hospitalization, Other)
  Sender: FDA-Public Use
  Company Number: US-ABBVIE-20K-163-3617942-00

PATIENT
  Age: 57 Year
  Sex: Male
  Weight: 122.58 kg

DRUGS (1)
  1. HUMIRA [Suspect]
     Active Substance: ADALIMUMAB
     Indication: RHEUMATOID ARTHRITIS
     Dosage: CITRATE FREE
     Route: 058
     Dates: start: 201901, end: 202011

REACTIONS (4)
  - Abscess limb [Recovered/Resolved]
  - COVID-19 [Recovered/Resolved]
  - Carpal tunnel syndrome [Recovered/Resolved]
  - Norovirus test positive [Recovered/Resolved]

NARRATIVE: CASE EVENT DATE: 201902
